FAERS Safety Report 4810505-7 (Version None)
Quarter: 2005Q4

REPORT INFORMATION
  Report Type: 
  Country: None (occurrence: None)
  Receive Date: 20051025
  Receipt Date: 20051025
  Transmission Date: 20060501
  Serious: Yes (Hospitalization)
  Sender: FDA-Public Use
  Company Number: None

PATIENT
  Sex: Female

DRUGS (1)
  1. ISOVUE-300 [Suspect]
     Indication: COMPUTERISED TOMOGRAM
     Dosage: 100 ML IV RT AC
     Route: 042

REACTIONS (4)
  - CARDIAC ARREST [None]
  - CONVULSION [None]
  - RESPIRATORY ARREST [None]
  - VOMITING [None]
